FAERS Safety Report 6006665-5 (Version None)
Quarter: 2008Q4

REPORT INFORMATION
  Report Type: 
  Country: None (occurrence: None)
  Receive Date: 20081215
  Receipt Date: 20081202
  Transmission Date: 20090506
  Serious: Yes (Hospitalization)
  Sender: FDA-Public Use
  Company Number: 1-17023618

PATIENT
  Age: 45 Year
  Sex: Female

DRUGS (2)
  1. METFORMIN HCL         TABLET 500 MG [Suspect]
     Indication: TYPE 2 DIABETES MELLITUS
     Dosage: 500 MG 3 TIMES DAILY; ORAL
     Route: 048
  2. FLUPENTIXOL [Concomitant]

REACTIONS (8)
  - CONTINUOUS HAEMODIAFILTRATION [None]
  - DIARRHOEA [None]
  - FALL [None]
  - LACTIC ACIDOSIS [None]
  - LOSS OF CONSCIOUSNESS [None]
  - NAUSEA [None]
  - RENAL FAILURE ACUTE [None]
  - VOMITING [None]
